FAERS Safety Report 6665848-1 (Version None)
Quarter: 2010Q2

REPORT INFORMATION
  Report Type: 
  Country: None (occurrence: None)
  Receive Date: 20100402
  Receipt Date: 20100326
  Transmission Date: 20101027
  Serious: Yes (Hospitalization)
  Sender: FDA-Public Use
  Company Number: IT-ROCHE-675244

PATIENT
  Sex: Male
  Weight: 80 kg

DRUGS (11)
  1. BLINDED TOCILIZUMAB [Suspect]
     Indication: RHEUMATOID ARTHRITIS
     Dosage: DOSE BLINDED, FORM: INFUSION; FORM ENTERED PER PROTOCOL
     Route: 042
     Dates: start: 20061211, end: 20081211
  2. TOCILIZUMAB [Suspect]
     Indication: RHEUMATOID ARTHRITIS
     Dosage: FORM: INFUSION; FORM ADDED PER PROTOCOL.
     Route: 042
     Dates: start: 20081211
  3. TOCILIZUMAB [Suspect]
     Route: 042
     Dates: start: 20090922
  4. TOCILIZUMAB [Suspect]
     Route: 042
     Dates: start: 20091013
  5. TOCILIZUMAB [Suspect]
     Route: 042
     Dates: start: 20091113
  6. TOCILIZUMAB [Suspect]
     Dosage: PERMANENTLY DISCONTINUED.
     Route: 042
     Dates: start: 20091211, end: 20091215
  7. PREDNISONE [Concomitant]
     Dates: start: 20060322
  8. FOLIC ACID [Concomitant]
     Dates: start: 19991102, end: 20091203
  9. IBUPROFEN [Concomitant]
     Dates: start: 20060707
  10. METHOTREXATE [Concomitant]
     Dates: start: 20060708, end: 20091203
  11. OMEPRAZOLE [Concomitant]
     Dates: start: 20051222

REACTIONS (1)
  - TRANSITIONAL CELL CARCINOMA [None]
